FAERS Safety Report 17212920 (Version 1)
Quarter: 2019Q4

REPORT INFORMATION
  Report Type: Spontaneous
  Country: JP (occurrence: JP)
  Receive Date: 20191230
  Receipt Date: 20191230
  Transmission Date: 20200122
  Serious: Yes (Other)
  Sender: FDA-Public Use
  Company Number: JP-SUN PHARMACEUTICAL INDUSTRIES LTD-2019RR-231899

PATIENT
  Age: 62 Year
  Sex: Female

DRUGS (3)
  1. ADRENALINE [Suspect]
     Active Substance: EPINEPHRINE
     Indication: ANAPHYLACTIC REACTION
     Dosage: 0.3 MILLIGRAM, UNK
     Route: 030
  2. ASPIRIN. [Suspect]
     Active Substance: ASPIRIN
     Dosage: 100 MILLIGRAM, DAILY
     Route: 048
  3. ASPIRIN. [Suspect]
     Active Substance: ASPIRIN
     Indication: ACUTE CORONARY SYNDROME
     Dosage: LOADING DOSE, ONCE
     Route: 048

REACTIONS (3)
  - Chest discomfort [Recovered/Resolved]
  - Urticaria [Recovered/Resolved]
  - Oedema [Recovered/Resolved]
